FAERS Safety Report 5690930-5 (Version None)
Quarter: 2008Q2

REPORT INFORMATION
  Report Type: 
  Country: None (occurrence: None)
  Receive Date: 20080401
  Receipt Date: 20080327
  Transmission Date: 20081010
  Serious: Yes (Hospitalization)
  Sender: FDA-Public Use
  Company Number: JP-GENENTECH-258387

PATIENT
  Age: 63 Year
  Sex: Female

DRUGS (5)
  1. ACTIVASE [Suspect]
     Indication: CEREBRAL ARTERY EMBOLISM
     Dosage: 29.3 MG, UNK
     Route: 042
     Dates: start: 20070730
  2. ASPIRIN [Suspect]
     Indication: LACUNAR INFARCTION
     Dosage: 200 MG, UNK
     Route: 048
     Dates: start: 20070802
  3. ARGATROBAN [Concomitant]
     Indication: DRUG USE FOR UNKNOWN INDICATION
     Dosage: 20 MG, UNK
     Route: 042
     Dates: start: 20070730
  4. RADICUT [Concomitant]
     Indication: DRUG USE FOR UNKNOWN INDICATION
     Dosage: 60 MG, UNK
     Route: 042
     Dates: start: 20070730
  5. LOW MOLECULAR DEXTRAN [Concomitant]
     Indication: DRUG USE FOR UNKNOWN INDICATION
     Dosage: 500 ML, UNK
     Route: 042
     Dates: start: 20070731

REACTIONS (1)
  - ATRIAL FIBRILLATION [None]
